FAERS Safety Report 26184855 (Version 1)
Quarter: 2025Q4

REPORT INFORMATION
  Report Type: Spontaneous
  Country: CN (occurrence: CN)
  Receive Date: 20251222
  Receipt Date: 20251222
  Transmission Date: 20260118
  Serious: Yes (Hospitalization, Other)
  Sender: RK PHARMA
  Company Number: CN-RK PHARMA, INC-20251200179

PATIENT
  Age: 15 Year
  Sex: Female

DRUGS (1)
  1. CARBAMAZEPINE [Suspect]
     Active Substance: CARBAMAZEPINE
     Indication: Poisoning
     Dosage: 33 TABLETS (0.1 GRAM PER TABLET), SINGLE
     Route: 065

REACTIONS (3)
  - Intentional overdose [Recovered/Resolved]
  - Urinary incontinence [Recovered/Resolved]
  - Mental impairment [Recovered/Resolved]
